FAERS Safety Report 21242238 (Version 1)
Quarter: 2022Q3

REPORT INFORMATION
  Report Type: Spontaneous
  Country: GB (occurrence: GB)
  Receive Date: 20220823
  Receipt Date: 20220823
  Transmission Date: 20221027
  Serious: Yes (Other)
  Sender: FDA-Public Use
  Company Number: GB-MHRA-MED-202208110233258220-WHTNR

PATIENT
  Age: 57 Year
  Sex: Female
  Weight: 78 kg

DRUGS (6)
  1. CITALOPRAM [Suspect]
     Active Substance: CITALOPRAM HYDROBROMIDE
     Indication: Adverse drug reaction
     Dosage: 20MG ONCE DAY IN MORNING; ;
     Route: 065
     Dates: start: 20220622
  2. CITALOPRAM HYDROBROMIDE [Suspect]
     Active Substance: CITALOPRAM HYDROBROMIDE
     Indication: Adverse drug reaction
     Dosage: 10MG ONCE DAY IN MORNING; ;
     Route: 065
     Dates: start: 20220622
  3. CITALOPRAM HYDROBROMIDE [Suspect]
     Active Substance: CITALOPRAM HYDROBROMIDE
     Dosage: 20MG ONCE A DAY IN MORNING; ;
     Route: 065
     Dates: start: 20220622
  4. LAMOTRIGINE [Concomitant]
     Active Substance: LAMOTRIGINE
     Indication: Adverse drug reaction
     Dosage: UNK
     Route: 065
     Dates: start: 20100514
  5. LEVOTHYROXINE [Concomitant]
     Active Substance: LEVOTHYROXINE
     Indication: Adverse drug reaction
     Dosage: UNK
     Route: 065
     Dates: start: 20180307
  6. LITHIUM [Concomitant]
     Active Substance: LITHIUM
     Indication: Adverse drug reaction
     Dosage: UNK
     Route: 065
     Dates: start: 20011008

REACTIONS (3)
  - Restless legs syndrome [Not Recovered/Not Resolved]
  - Dizziness [Not Recovered/Not Resolved]
  - Insomnia [Not Recovered/Not Resolved]

NARRATIVE: CASE EVENT DATE: 20220622
